APPROVED DRUG PRODUCT: KALETRA
Active Ingredient: LOPINAVIR; RITONAVIR
Strength: 100MG;25MG
Dosage Form/Route: TABLET;ORAL
Application: N021906 | Product #002 | TE Code: AB
Applicant: ABBVIE INC
Approved: Nov 9, 2007 | RLD: Yes | RS: No | Type: RX